FAERS Safety Report 19377364 (Version 1)
Quarter: 2021Q2

REPORT INFORMATION
  Report Type: Spontaneous
  Country: GB (occurrence: GB)
  Receive Date: 20210605
  Receipt Date: 20210605
  Transmission Date: 20210717
  Serious: Yes (Other)
  Sender: FDA-Public Use
  Company Number: GB-TEVA-2021-GB-1918421

PATIENT
  Age: 66 Year
  Sex: Female
  Weight: 76.2 kg

DRUGS (6)
  1. IPRATROPIUM BROMIDE. [Suspect]
     Active Substance: IPRATROPIUM BROMIDE
     Indication: ASTHMA
     Dosage: 4 DOSAGE FORMS DAILY; PUFFS, UNIT DOSE : 2 DOSAGE FORMS
     Route: 055
     Dates: start: 20210506, end: 20210514
  2. SERETIDE [Concomitant]
     Active Substance: FLUTICASONE PROPIONATE\SALMETEROL XINAFOATE
  3. VITAMIN D [Concomitant]
     Active Substance: VITAMIN D NOS
  4. BISOPROLOL [Concomitant]
     Active Substance: BISOPROLOL
  5. COCODAMOL [Concomitant]
     Active Substance: ACETAMINOPHEN\CODEINE PHOSPHATE
  6. OMEPRAZOLE. [Concomitant]
     Active Substance: OMEPRAZOLE

REACTIONS (6)
  - Cough [Recovered/Resolved]
  - Joint swelling [Recovered/Resolved]
  - Erythema [Recovered/Resolved]
  - Dysphonia [Recovered/Resolved]
  - Pruritus [Recovered/Resolved]
  - Vision blurred [Recovered/Resolved]

NARRATIVE: CASE EVENT DATE: 20210506
